FAERS Safety Report 5585769-5 (Version None)
Quarter: 2007Q4

REPORT INFORMATION
  Report Type: 
  Country: None (occurrence: None)
  Receive Date: 20071203
  Receipt Date: 20070130
  Transmission Date: 20080405
  Serious: Yes (Other)
  Sender: FDA-Public Use
  Company Number: 2007007926

PATIENT
  Sex: Female

DRUGS (3)
  1. ZYVOX [Suspect]
     Indication: DRUG TOLERANCE
     Dosage: 1200 MG (600 MG,BID: EVERY DAY)
     Dates: start: 20061204, end: 20061214
  2. ZYVOX [Suspect]
     Indication: RED MAN SYNDROME
     Dosage: 1200 MG (600 MG,BID: EVERY DAY)
     Dates: start: 20061204, end: 20061214
  3. SYNTHROID [Concomitant]

REACTIONS (1)
  - HAEMOGLOBIN DECREASED [None]
